FAERS Safety Report 19083516 (Version 1)
Quarter: 2021Q2

REPORT INFORMATION
  Report Type: Spontaneous
  Country: CA (occurrence: CA)
  Receive Date: 20210401
  Receipt Date: 20210401
  Transmission Date: 20210717
  Serious: Yes (Other)
  Sender: FDA-Public Use
  Company Number: CA-PFIZER INC-2020423052

PATIENT
  Age: 94 Year
  Sex: Female

DRUGS (17)
  1. CELEBREX [Concomitant]
     Active Substance: CELECOXIB
     Dosage: 100 MG, 2X/DAY
     Route: 065
  2. INDAPAMIDE. [Concomitant]
     Active Substance: INDAPAMIDE
     Dosage: 1.25 MG (1/2 TAB)
     Route: 048
  3. LEUCOVORIN CA [Concomitant]
     Active Substance: LEUCOVORIN CALCIUM
     Dosage: 5 MG 3X/WEEK
     Route: 065
  4. TYLENOL [Concomitant]
     Active Substance: ACETAMINOPHEN
     Dosage: 500 MG, 4X/DAY (1?2 TABS QID PRN)
     Route: 048
  5. TOZINAMERAN. [Concomitant]
     Active Substance: TOZINAMERAN
     Indication: COVID-19 IMMUNISATION
     Dosage: SINGLE DOSE
     Dates: start: 20210312, end: 20210312
  6. ASA [Concomitant]
     Active Substance: ASPIRIN
     Route: 065
  7. DILANTIN [Concomitant]
     Active Substance: PHENYTOIN
     Indication: TRANSIENT ISCHAEMIC ATTACK
     Dosage: 100 MG, 1X/DAY
     Route: 065
  8. VITAMIN D NOS [Concomitant]
     Active Substance: VITAMIN D NOS
     Dosage: UNK
     Route: 065
  9. GABAPENTIN. [Concomitant]
     Active Substance: GABAPENTIN
     Dosage: 100 MG, 4X/DAY AS NEEDED (PRN)
     Route: 065
  10. ASA [Concomitant]
     Active Substance: ASPIRIN
     Dosage: 81 MG
     Route: 065
  11. CALCIUM [Concomitant]
     Active Substance: CALCIUM
     Dosage: UNK
     Route: 065
  12. METHOTREXATE. [Concomitant]
     Active Substance: METHOTREXATE
     Dosage: UNK (REDUCED DOSE)
     Route: 065
     Dates: start: 2020, end: 202010
  13. PANTOPRAZOLE [Concomitant]
     Active Substance: PANTOPRAZOLE
     Dosage: 40 MG, 1X/DAY
     Route: 065
  14. XELJANZ XR [Suspect]
     Active Substance: TOFACITINIB CITRATE
     Indication: RHEUMATOID ARTHRITIS
     Dosage: 11 MG, DAILY
     Route: 048
     Dates: start: 20201019
  15. FOSINOPRIL [Concomitant]
     Active Substance: FOSINOPRIL
     Dosage: 10 MG, 1X/DAY
     Route: 065
  16. INDAPAMIDE. [Concomitant]
     Active Substance: INDAPAMIDE
     Dosage: UNK, DAILY (1.25MG, 1/2 TAB DAILY)
     Route: 048
  17. METHOTREXATE. [Concomitant]
     Active Substance: METHOTREXATE
     Dosage: 12.5 MG, WEEKLY
     Route: 065
     Dates: start: 202003, end: 2020

REACTIONS (23)
  - Constipation [Recovered/Resolved]
  - Hernia [Not Recovered/Not Resolved]
  - Affective disorder [Unknown]
  - Skin laceration [Unknown]
  - Fall [Unknown]
  - Rib fracture [Unknown]
  - Drug ineffective [Recovering/Resolving]
  - Dysgeusia [Recovering/Resolving]
  - Pain in extremity [Unknown]
  - Psoriasis [Unknown]
  - Hair growth abnormal [Unknown]
  - Depression [Recovering/Resolving]
  - Feeling abnormal [Unknown]
  - Depressed mood [Unknown]
  - Immune system disorder [Unknown]
  - Pain [Not Recovered/Not Resolved]
  - Decreased appetite [Recovering/Resolving]
  - Condition aggravated [Not Recovered/Not Resolved]
  - Fatigue [Not Recovered/Not Resolved]
  - Skin fissures [Unknown]
  - Therapeutic response unexpected [Unknown]
  - Peripheral swelling [Unknown]
  - Malaise [Unknown]

NARRATIVE: CASE EVENT DATE: 2020
